FAERS Safety Report 11188683 (Version 3)
Quarter: 2015Q3

REPORT INFORMATION
  Report Type: Report from Study
  Country: US (occurrence: US)
  Receive Date: 20150615
  Receipt Date: 20150831
  Transmission Date: 20151125
  Serious: Yes (Hospitalization, Other)
  Sender: FDA-Public Use
  Company Number: US-ALEXION PHARMACEUTICALS INC.-A201502082

PATIENT

DRUGS (6)
  1. SOLIRIS [Suspect]
     Active Substance: ECULIZUMAB
     Dosage: 900 MG, Q2W
     Route: 042
  2. DILAUDID [Concomitant]
     Active Substance: HYDROMORPHONE HYDROCHLORIDE
     Indication: PAIN
     Dosage: UNK, Q2H
     Route: 042
     Dates: start: 20150529
  3. RIFAMPIN. [Concomitant]
     Active Substance: RIFAMPIN
     Indication: INFECTION
     Dosage: UNK
     Route: 042
     Dates: start: 20150529
  4. SOLIRIS [Suspect]
     Active Substance: ECULIZUMAB
     Indication: PAROXYSMAL NOCTURNAL HAEMOGLOBINURIA
     Dosage: UNK
     Route: 042
     Dates: start: 2008
  5. VANCOMYCIN [Concomitant]
     Active Substance: VANCOMYCIN
     Indication: INFECTION
     Dosage: UNK
     Route: 065
     Dates: end: 20150531
  6. DAPTOMYCIN. [Concomitant]
     Active Substance: DAPTOMYCIN
     Indication: STAPHYLOCOCCAL BACTERAEMIA
     Dosage: UNK
     Dates: start: 20150531

REACTIONS (11)
  - Asthenia [Recovering/Resolving]
  - Staphylococcal bacteraemia [Recovered/Resolved]
  - Neck pain [Recovering/Resolving]
  - Spinal pain [Recovered/Resolved]
  - Osteomyelitis [Not Recovered/Not Resolved]
  - Hemiparesis [Recovered/Resolved]
  - Headache [Recovered/Resolved]
  - Pyrexia [Recovered/Resolved]
  - Spinal cord infection [Not Recovered/Not Resolved]
  - Intervertebral disc protrusion [Not Recovered/Not Resolved]
  - Cellulitis [Recovered/Resolved]

NARRATIVE: CASE EVENT DATE: 20150528
